FAERS Safety Report 5328436-5 (Version None)
Quarter: 2007Q2

REPORT INFORMATION
  Report Type: 
  Country: None (occurrence: None)
  Receive Date: 20070516
  Receipt Date: 20070516
  Transmission Date: 20071010
  Serious: Yes (Hospitalization)
  Sender: FDA-Public Use
  Company Number: None

PATIENT
  Age: 66 Year
  Sex: Male
  Weight: 90 kg

DRUGS (6)
  1. DIGOXIN [Suspect]
     Indication: CARDIAC FAILURE CONGESTIVE
     Dosage: 0.25 MG DAILY PO
     Route: 048
  2. PLAVIX [Concomitant]
  3. SPIRONLACTONE [Concomitant]
  4. AMIODARONE HCL [Concomitant]
  5. LASIX [Concomitant]
  6. LIPITOR [Concomitant]

REACTIONS (6)
  - CARDIOACTIVE DRUG LEVEL INCREASED [None]
  - GLYCOSYLATED HAEMOGLOBIN INCREASED [None]
  - MYOCARDIAL INFARCTION [None]
  - NODAL RHYTHM [None]
  - ORAL INTAKE REDUCED [None]
  - RENAL FAILURE [None]
